FAERS Safety Report 7332653-2 (Version None)
Quarter: 2011Q1

REPORT INFORMATION
  Report Type: 
  Country: None (occurrence: None)
  Receive Date: 20110304
  Receipt Date: 20110228
  Transmission Date: 20110831
  Serious: Yes (Life-Threatening, Hospitalization)
  Sender: FDA-Public Use
  Company Number: DK-ASTRAZENECA-2011SE11077

PATIENT
  Age: 62 Year
  Sex: Male

DRUGS (10)
  1. LANSOPRAZOLE [Suspect]
     Route: 048
     Dates: start: 20080507, end: 20080523
  2. CIPROFLOXACIN [Suspect]
     Indication: PYREXIA
     Dates: start: 20080430, end: 20080503
  3. ZINACEF [Concomitant]
     Route: 030
     Dates: start: 20080430, end: 20080510
  4. MERONEM [Suspect]
     Indication: PYREXIA
     Route: 042
     Dates: start: 20080511, end: 20080516
  5. PANTOLOC [Suspect]
     Route: 048
     Dates: start: 20080428, end: 20080507
  6. FLUCONAZOLE [Suspect]
     Indication: PYREXIA
     Dates: start: 20080429, end: 20080519
  7. THIAMINE HCL [Concomitant]
     Indication: HYPOVITAMINOSIS
     Dates: start: 20080428
  8. ZINACEF [Concomitant]
     Indication: PYREXIA
     Route: 030
     Dates: start: 20080428, end: 20080430
  9. PANTOLOC [Suspect]
     Route: 048
     Dates: start: 20080527, end: 20080530
  10. VITAMIN B SUBSTANCES [Concomitant]
     Indication: HYPOVITAMINOSIS
     Dosage: THREE TIMES A DAY

REACTIONS (4)
  - TREMOR [None]
  - PAIN IN EXTREMITY [None]
  - TOXIC EPIDERMAL NECROLYSIS [None]
  - PARAESTHESIA [None]
